FAERS Safety Report 9059974 (Version 1)
Quarter: 2013Q1

REPORT INFORMATION
  Report Type: Spontaneous
  Country: US (occurrence: None)
  Receive Date: 20130118
  Receipt Date: 20130118
  Transmission Date: 20140127
  Serious: Yes (Death)
  Sender: FDA-Public Use
  Company Number: NMS-00068

PATIENT
  Age: 74 Year
  Sex: Female

DRUGS (10)
  1. NITROGLYCERIN SLOCAPS [Suspect]
  2. DABIGATRAN [Suspect]
  3. TORSEMIDE [Concomitant]
  4. DIGOXIN [Concomitant]
  5. METOPROLOL [Concomitant]
  6. COLCHICINE [Concomitant]
  7. SALICYLATE [Concomitant]
  8. SIMVASTATIN [Concomitant]
  9. CLONAZEPAM [Concomitant]
  10. OMEPRAZOLE [Concomitant]

REACTIONS (5)
  - Anaemia [None]
  - Renal failure acute [None]
  - Coagulopathy [None]
  - Pulseless electrical activity [None]
  - Enterocolitis infectious [None]
